FAERS Safety Report 12882316 (Version 1)
Quarter: 2016Q4

REPORT INFORMATION
  Report Type: Spontaneous
  Country: IT (occurrence: IT)
  Receive Date: 20161025
  Receipt Date: 20161025
  Transmission Date: 20170207
  Serious: Yes (Other)
  Sender: FDA-Public Use
  Company Number: IT-JNJFOC-20161019239

PATIENT
  Age: 13 Year
  Sex: Male

DRUGS (6)
  1. MELATONINA [Concomitant]
     Route: 065
  2. SABRIL [Concomitant]
     Active Substance: VIGABATRIN
     Route: 065
  3. RISPERDAL [Suspect]
     Active Substance: RISPERIDONE
     Indication: EPILEPSY
     Route: 065
     Dates: start: 20131001, end: 20131003
  4. DEPAKIN [Concomitant]
     Active Substance: VALPROATE SODIUM
     Route: 065
  5. TRITTICO [Concomitant]
     Active Substance: TRAZODONE HYDROCHLORIDE
     Route: 065
  6. FRISIUM [Concomitant]
     Active Substance: CLOBAZAM
     Route: 065

REACTIONS (4)
  - Off label use [Unknown]
  - Epilepsy [Recovering/Resolving]
  - Fluid retention [Recovering/Resolving]
  - Product use issue [Unknown]

NARRATIVE: CASE EVENT DATE: 20131003
